FAERS Safety Report 5193040-9 (Version None)
Quarter: 2006Q4

REPORT INFORMATION
  Report Type: 
  Country: None (occurrence: None)
  Receive Date: 20061228
  Receipt Date: 20060307
  Transmission Date: 20070319
  Serious: No
  Sender: FDA-Public Use
  Company Number: US-GLAXOSMITHKLINE-A0596526A

PATIENT
  Age: 73 Year
  Sex: Male
  Weight: 93.2 kg

DRUGS (4)
  1. AVODART [Suspect]
     Indication: BENIGN PROSTATIC HYPERPLASIA
     Dosage: .5MG PER DAY
     Route: 048
     Dates: start: 20050101, end: 20060214
  2. ANDROGEL [Suspect]
     Route: 061
  3. ZETIA [Concomitant]
     Route: 048
  4. DIOVAN [Concomitant]
     Route: 048

REACTIONS (2)
  - BREAST ENLARGEMENT [None]
  - BREAST TENDERNESS [None]
